FAERS Safety Report 8575636-7 (Version None)
Quarter: 2012Q3

REPORT INFORMATION
  Report Type: 
  Country: None (occurrence: None)
  Receive Date: 20120807
  Receipt Date: 20120803
  Transmission Date: 20120928
  Serious: Yes (Other)
  Sender: FDA-Public Use
  Company Number: PHHY2012CA017675

PATIENT
  Sex: Female

DRUGS (3)
  1. SANDOSTATIN LAR [Suspect]
     Indication: PANCREATIC NEUROENDOCRINE TUMOUR METASTATIC
     Dosage: 40 MG, EVERY 4 WEEKS
     Route: 030
     Dates: start: 20110914
  2. SANDOSTATIN LAR [Suspect]
     Dosage: 40 MG, EVERY 4 WEEKS
     Route: 030
     Dates: start: 20110928
  3. SANDOSTATIN LAR [Suspect]
     Dosage: 30 MG, ONCE IN EVERY 4 WEEKS
     Route: 058

REACTIONS (8)
  - INJECTION SITE MASS [None]
  - URINARY TRACT INFECTION [None]
  - FATIGUE [None]
  - PRODUCT QUALITY ISSUE [None]
  - INJECTION SITE PAIN [None]
  - ABDOMINAL PAIN [None]
  - ASCITES [None]
  - MALAISE [None]
